FAERS Safety Report 9097505 (Version 1)
Quarter: 2013Q1

REPORT INFORMATION
  Report Type: Spontaneous
  Country: PT (occurrence: PT)
  Receive Date: 20130212
  Receipt Date: 20130212
  Transmission Date: 20140127
  Serious: Yes (Other)
  Sender: FDA-Public Use
  Company Number: PHHY2013PT013140

PATIENT
  Age: 78 Year
  Sex: Male

DRUGS (2)
  1. EXJADE [Suspect]
     Indication: MYELODYSPLASTIC SYNDROME
     Dosage: 2040 MG, QD
     Route: 048
     Dates: start: 20120808
  2. EXJADE [Suspect]
     Dosage: 1500 MG, QD
     Route: 048
     Dates: start: 20120823, end: 201212

REACTIONS (7)
  - Nephropathy toxic [Unknown]
  - Blood urea increased [Unknown]
  - Creatinine renal clearance increased [Unknown]
  - Reticulocyte count increased [Unknown]
  - Muscle spasms [Unknown]
  - Nausea [Unknown]
  - C-reactive protein increased [Unknown]
